FAERS Safety Report 9304228 (Version 3)
Quarter: 2013Q2

REPORT INFORMATION
  Report Type: Report from Study
  Country: US (occurrence: US)
  Receive Date: 20130522
  Receipt Date: 20130614
  Transmission Date: 20140414
  Serious: Yes (Hospitalization)
  Sender: FDA-Public Use
  Company Number: US-TEVA-406577USA

PATIENT
  Age: 83 Year
  Sex: Female
  Weight: 87.67 kg

DRUGS (10)
  1. TREANDA [Suspect]
     Indication: LYMPHOMA
     Dosage: CYCLE 3
     Route: 042
     Dates: start: 20130320, end: 20130501
  2. OFATUMUMAB [Suspect]
     Indication: LYMPHOMA
     Dosage: CYCLE 3
     Route: 042
     Dates: start: 20130320, end: 20130430
  3. ASPIRIN [Concomitant]
     Indication: PROPHYLAXIS
     Dosage: 81 MILLIGRAM DAILY;
     Dates: start: 19830101
  4. COZAAR [Concomitant]
     Indication: HYPERTENSION
     Dosage: 100 MILLIGRAM DAILY;
     Dates: start: 19830101, end: 20130517
  5. HYDROCHLOROTHIAZIDE [Concomitant]
     Indication: HYPERTENSION
     Dosage: 50 MILLIGRAM DAILY;
     Dates: start: 19830101, end: 20130517
  6. LIPITOR [Concomitant]
     Indication: HYPERLIPIDAEMIA
     Dosage: 10 MILLIGRAM DAILY;
     Dates: start: 19980101
  7. NORVASC [Concomitant]
     Indication: HYPERTENSION
     Dosage: 2.5 MILLIGRAM DAILY;
     Dates: start: 19870101, end: 20130517
  8. OSCAL 500-D [Concomitant]
     Indication: SUPPLEMENTATION THERAPY
     Dosage: 500/200
     Dates: start: 19980101
  9. TYLENOL EXTRA-STRENGTH [Concomitant]
     Indication: ARTHRALGIA
     Dosage: 2000 MILLIGRAM DAILY;
     Dates: start: 20130327
  10. TYLENOL EXTRA-STRENGTH [Concomitant]
     Indication: BACK PAIN

REACTIONS (1)
  - Dehydration [Recovered/Resolved]
